FAERS Safety Report 15716634 (Version 1)
Quarter: 2018Q4

REPORT INFORMATION
  Report Type: Report from Study
  Country: None (occurrence: US)
  Receive Date: 20181213
  Receipt Date: 20181213
  Transmission Date: 20190205
  Serious: Yes (Hospitalization, Other)
  Sender: FDA-Public Use
  Company Number: US-ABBVIE-18K-163-2578152-00

PATIENT
  Age: 48 Year
  Sex: Female
  Weight: 56.75 kg

DRUGS (2)
  1. HUMIRA [Suspect]
     Active Substance: ADALIMUMAB
     Indication: ANKYLOSING SPONDYLITIS
  2. HUMIRA [Suspect]
     Active Substance: ADALIMUMAB
     Indication: CROHN^S DISEASE
     Route: 058
     Dates: start: 2014

REACTIONS (14)
  - Memory impairment [Recovered/Resolved]
  - Unresponsive to stimuli [Recovered/Resolved]
  - Abdominal infection [Recovered/Resolved]
  - Intussusception [Recovered/Resolved]
  - Ileectomy [Unknown]
  - Drug level decreased [Unknown]
  - Dehydration [Recovered/Resolved]
  - Hepatic failure [Unknown]
  - Procedural pain [Recovered/Resolved]
  - Mesenteric vascular insufficiency [Recovered/Resolved]
  - Mental disorder [Recovered/Resolved]
  - Stomatitis [Unknown]
  - Hallucination [Recovered/Resolved]
  - Renal failure [Unknown]

NARRATIVE: CASE EVENT DATE: 201708
